FAERS Safety Report 11252637 (Version 1)
Quarter: 2015Q3

REPORT INFORMATION
  Report Type: Spontaneous
  Country: GB (occurrence: GB)
  Receive Date: 20150708
  Receipt Date: 20150708
  Transmission Date: 20151125
  Serious: Yes (Other)
  Sender: FDA-Public Use
  Company Number: GB-GLAXOSMITHKLINE-GB2015097470

PATIENT
  Age: 63 Year
  Sex: Male

DRUGS (1)
  1. BECONASE AQ [Suspect]
     Active Substance: BECLOMETHASONE DIPROPIONATE MONOHYDRATE
     Indication: EUSTACHIAN TUBE DYSFUNCTION
     Dosage: HAS BEEN USING THE PRODUCT ON AND OFF
     Route: 065

REACTIONS (3)
  - Tympanic membrane perforation [Not Recovered/Not Resolved]
  - Epistaxis [Not Recovered/Not Resolved]
  - Deafness unilateral [Not Recovered/Not Resolved]
